FAERS Safety Report 14750022 (Version 1)
Quarter: 2018Q2

REPORT INFORMATION
  Report Type: Spontaneous
  Country: US (occurrence: US)
  Receive Date: 20180412
  Receipt Date: 20180412
  Transmission Date: 20180711
  Serious: No
  Sender: FDA-Public Use
  Company Number: US-JNJFOC-20180326443

PATIENT
  Age: 39 Year
  Sex: Female
  Weight: 54.43 kg

DRUGS (1)
  1. CHILDRENS TYLENOL [Suspect]
     Active Substance: ACETAMINOPHEN
     Indication: PRODUCT USED FOR UNKNOWN INDICATION
     Dosage: 1/4 OF A CHEWABLE TABLET ONE TIME
     Route: 065
     Dates: start: 2018

REACTIONS (4)
  - Wrong technique in product usage process [Unknown]
  - Drug administered to patient of inappropriate age [Unknown]
  - Product taste abnormal [Unknown]
  - Product use in unapproved indication [Unknown]
